FAERS Safety Report 7390120-4 (Version None)
Quarter: 2011Q2

REPORT INFORMATION
  Report Type: 
  Country: None (occurrence: None)
  Receive Date: 20110401
  Receipt Date: 20110319
  Transmission Date: 20111010
  Serious: Yes (Other)
  Sender: FDA-Public Use
  Company Number: PHHY2011US23425

PATIENT
  Sex: Female
  Weight: 83.9 kg

DRUGS (1)
  1. GILENYA [Suspect]
     Indication: MULTIPLE SCLEROSIS
     Dosage: 0.5 MG, DAILY
     Route: 048
     Dates: start: 20110113

REACTIONS (9)
  - VIRAL INFECTION [None]
  - LARYNGITIS [None]
  - OROPHARYNGEAL PAIN [None]
  - PYREXIA [None]
  - LYMPHOCYTE COUNT DECREASED [None]
  - MALAISE [None]
  - FATIGUE [None]
  - NASOPHARYNGITIS [None]
  - COUGH [None]
